FAERS Safety Report 5956372-X (Version None)
Quarter: 2008Q4

REPORT INFORMATION
  Report Type: 
  Country: None (occurrence: None)
  Receive Date: 20081112
  Receipt Date: 20081031
  Transmission Date: 20090506
  Serious: Yes (Other)
  Sender: FDA-Public Use
  Company Number: PI-02719

PATIENT
  Age: 88 Year
  Sex: Male

DRUGS (1)
  1. CHLORAPREP (2%CHG/ 70%IPA) WITH TINT (FD+C YELLOW #6) [Suspect]
     Indication: PREOPERATIVE CARE
     Dosage: 26 ML, ONCE, TOPICAL
     Route: 061
     Dates: start: 20081030

REACTIONS (3)
  - AIRWAY BURNS [None]
  - BURNS FIRST DEGREE [None]
  - EXCORIATION [None]
